FAERS Safety Report 24345377 (Version 2)
Quarter: 2024Q4

REPORT INFORMATION
  Report Type: Spontaneous
  Country: US (occurrence: US)
  Receive Date: 20240920
  Receipt Date: 20241121
  Transmission Date: 20250114
  Serious: Yes (Other)
  Sender: BRISTOL-MYERS SQUIBB COMPANY
  Company Number: US-BRISTOL-MYERS SQUIBB COMPANY-2024-149553

PATIENT
  Age: 72 Year
  Sex: Male
  Weight: 84.82 kg

DRUGS (1)
  1. REVLIMID [Suspect]
     Active Substance: LENALIDOMIDE
     Indication: Plasma cell myeloma
     Dosage: 15MG CAPSULE DAILY FOR 21 DAYS THEN 7 DAYS OFF
     Route: 048

REACTIONS (3)
  - Neuropathy peripheral [Recovering/Resolving]
  - Oedema [Recovering/Resolving]
  - Osteonecrosis of jaw [Recovering/Resolving]
